FAERS Safety Report 17586401 (Version 1)
Quarter: 2020Q1

REPORT INFORMATION
  Report Type: Spontaneous
  Country: BR (occurrence: BR)
  Receive Date: 20200326
  Receipt Date: 20200326
  Transmission Date: 20200409
  Serious: Yes (Hospitalization)
  Sender: FDA-Public Use
  Company Number: BR-ELI_LILLY_AND_COMPANY-BR202003010321

PATIENT
  Age: 59 Year
  Sex: Male
  Weight: 70 kg

DRUGS (5)
  1. AAS [Concomitant]
     Active Substance: ASPIRIN
     Indication: PRODUCT USED FOR UNKNOWN INDICATION
     Dosage: UNK, UNKNOWN
     Route: 048
     Dates: start: 202003
  2. EFFIENT [Suspect]
     Active Substance: PRASUGREL HYDROCHLORIDE
     Indication: STENT PLACEMENT
     Dosage: UNK, UNKNOWN
     Route: 065
  3. TREZOR [ROSUVASTATIN CALCIUM] [Concomitant]
     Indication: PRODUCT USED FOR UNKNOWN INDICATION
     Dosage: 40 MG, DAILY
     Route: 048
     Dates: start: 202003
  4. EFFIENT [Suspect]
     Active Substance: PRASUGREL HYDROCHLORIDE
     Indication: MYOCARDIAL INFARCTION
     Dosage: 10 MG, DAILY
     Route: 048
     Dates: start: 20200307
  5. ATENOL [Concomitant]
     Active Substance: ATENOLOL
     Indication: PRODUCT USED FOR UNKNOWN INDICATION
     Dosage: 50 MG, DAILY
     Route: 048
     Dates: start: 202003

REACTIONS (2)
  - Intentional product misuse [Not Recovered/Not Resolved]
  - Myocardial infarction [Recovering/Resolving]

NARRATIVE: CASE EVENT DATE: 20200307
